FAERS Safety Report 7006400-8 (Version None)
Quarter: 2010Q3

REPORT INFORMATION
  Report Type: 
  Country: None (occurrence: None)
  Receive Date: 20100909
  Receipt Date: 20100830
  Transmission Date: 20110219
  Serious: Yes (Hospitalization)
  Sender: FDA-Public Use
  Company Number: 2010SP046603

PATIENT
  Age: 27 Year
  Sex: Male

DRUGS (3)
  1. PEG-INTRON [Suspect]
     Indication: HEPATITIS C
     Dosage: 80 MCG;
     Dates: start: 20100505, end: 20100710
  2. REBETOL [Suspect]
     Indication: HEPATITIS C
     Dosage: 400 MG;
     Dates: start: 20100505, end: 20100710
  3. SUBUTEX [Concomitant]

REACTIONS (1)
  - PERICARDITIS [None]
